FAERS Safety Report 9465104 (Version 1)
Quarter: 2013Q3

REPORT INFORMATION
  Report Type: Spontaneous
  Country: BR (occurrence: BR)
  Receive Date: 20130819
  Receipt Date: 20130819
  Transmission Date: 20140515
  Serious: Yes (Hospitalization)
  Sender: FDA-Public Use
  Company Number: BR-B.I. PHARMACEUTICALS,INC./RIDGEFIELD-2013-BR-00911BR

PATIENT
  Age: 29 Year
  Sex: Female

DRUGS (2)
  1. ATROVENT [Suspect]
     Indication: SUICIDE ATTEMPT
     Route: 048
     Dates: start: 20130310
  2. BEROTEC [Suspect]
     Indication: SUICIDE ATTEMPT
     Route: 048
     Dates: start: 20130810

REACTIONS (3)
  - Suicide attempt [Not Recovered/Not Resolved]
  - Tremor [Not Recovered/Not Resolved]
  - Tachycardia [Not Recovered/Not Resolved]
